FAERS Safety Report 6833035-X (Version None)
Quarter: 2010Q3

REPORT INFORMATION
  Report Type: 
  Country: None (occurrence: None)
  Receive Date: 20100712
  Receipt Date: 20070320
  Transmission Date: 20110219
  Serious: No
  Sender: FDA-Public Use
  Company Number: US-PFIZER INC-2007024307

PATIENT
  Sex: Female
  Weight: 77.11 kg

DRUGS (10)
  1. CHANTIX [Suspect]
     Dates: start: 20070211, end: 20070201
  2. OXYCONTIN [Concomitant]
  3. SYNTHROID [Concomitant]
  4. SOTALOL HCL [Concomitant]
  5. ACETYLSALICYLIC ACID [Concomitant]
  6. MELOXICAM [Concomitant]
  7. ZELNORM [Concomitant]
     Indication: IRRITABLE BOWEL SYNDROME
  8. PREMARIN [Concomitant]
  9. LASIX [Concomitant]
  10. LEXAPRO [Concomitant]

REACTIONS (2)
  - NAUSEA [None]
  - VOMITING [None]
